FAERS Safety Report 7809794-6 (Version None)
Quarter: 2011Q4

REPORT INFORMATION
  Report Type: 
  Country: None (occurrence: None)
  Receive Date: 20111012
  Receipt Date: 20110929
  Transmission Date: 20120403
  Serious: Yes (Hospitalization)
  Sender: FDA-Public Use
  Company Number: US-BAYER-2010-001712

PATIENT
  Age: 20 Year
  Sex: Female
  Weight: 73.016 kg

DRUGS (7)
  1. PROMETHAZINE [Concomitant]
     Indication: CHOLELITHIASIS
  2. LORTAB [Concomitant]
     Indication: ABDOMINAL PAIN UPPER
     Dosage: UNK
     Dates: start: 20080101
  3. YAZ [Suspect]
  4. METRONIDAZOLE [Concomitant]
     Dosage: UNK
     Dates: start: 20081001
  5. YASMIN [Suspect]
  6. ONDANSETRON [Concomitant]
     Dosage: UNK
     Dates: start: 20081101
  7. PROMETHAZINE [Concomitant]
     Indication: GALLBLADDER DISORDER
     Dosage: UNK
     Dates: start: 20080101

REACTIONS (7)
  - GALLBLADDER DISORDER [None]
  - GASTROOESOPHAGEAL REFLUX DISEASE [None]
  - CARDIAC FLUTTER [None]
  - ABDOMINAL PAIN [None]
  - CHOLECYSTITIS CHRONIC [None]
  - CHOLELITHIASIS [None]
  - ULCER [None]
